FAERS Safety Report 14218204 (Version 3)
Quarter: 2018Q1

REPORT INFORMATION
  Report Type: Spontaneous
  Country: JP (occurrence: JP)
  Receive Date: 20171123
  Receipt Date: 20180111
  Transmission Date: 20180508
  Serious: Yes (Hospitalization, Other)
  Sender: FDA-Public Use
  Company Number: JP-AMGEN-JPNSP2017174254

PATIENT
  Age: 81 Year
  Sex: Female
  Weight: 38 kg

DRUGS (10)
  1. LOXOPROFEN NA [Concomitant]
     Active Substance: LOXOPROFEN SODIUM
     Dosage: UNK
     Route: 065
  2. PRALIA [Suspect]
     Active Substance: DENOSUMAB
     Indication: OSTEOPOROSIS
     Dosage: 60 MG, Q6MO
     Route: 058
     Dates: start: 20161118
  3. ORENCIA [Concomitant]
     Active Substance: ABATACEPT
     Dosage: UNK UNK, ONCE IN 9 DAYS
     Route: 058
  4. PREDONINE [Concomitant]
     Active Substance: PREDNISOLONE
     Dosage: 5 MG, BID
     Route: 048
     Dates: start: 2014, end: 2016
  5. PREDONINE [Concomitant]
     Active Substance: PREDNISOLONE
     Dosage: 10 MG, QD
     Route: 065
  6. ALFACALCIDOL [Concomitant]
     Active Substance: ALFACALCIDOL
     Dosage: 1/2T, QD
     Route: 065
  7. DEXAN VG [Concomitant]
     Dosage: UNK
     Route: 065
  8. PREDONINE [Concomitant]
     Active Substance: PREDNISOLONE
     Dosage: 1 T/QD
     Route: 065
  9. ORENCIA [Concomitant]
     Active Substance: ABATACEPT
     Dosage: 125 MG, ONCE IN 9 DAYS
     Route: 058
     Dates: start: 20160825
  10. ALFACALCIDOL [Concomitant]
     Active Substance: ALFACALCIDOL
     Dosage: 500 UNK, BID
     Route: 048
     Dates: start: 2010, end: 20170922

REACTIONS (1)
  - Osteonecrosis of jaw [Recovered/Resolved]

NARRATIVE: CASE EVENT DATE: 20170705
